FAERS Safety Report 23068314 (Version 1)
Quarter: 2023Q4

REPORT INFORMATION
  Report Type: Spontaneous
  Country: US (occurrence: US)
  Receive Date: 20231016
  Receipt Date: 20231016
  Transmission Date: 20240110
  Serious: No
  Sender: FDA-Public Use
  Company Number: US-TEVA-2023-US-2936643

PATIENT
  Age: 67 Year
  Sex: Female

DRUGS (1)
  1. AUSTEDO [Suspect]
     Active Substance: DEUTETRABENAZINE
     Indication: Product used for unknown indication
     Dosage: 6 MILLIGRAM DAILY;
     Route: 065

REACTIONS (2)
  - Chromaturia [Recovered/Resolved]
  - Product use issue [Unknown]
